FAERS Safety Report 6055675-0 (Version None)
Quarter: 2009Q1

REPORT INFORMATION
  Report Type: 
  Country: None (occurrence: None)
  Receive Date: 20090128
  Receipt Date: 20090122
  Transmission Date: 20090719
  Serious: Yes (Other)
  Sender: FDA-Public Use
  Company Number: ES-BAYER-200911746GPV

PATIENT
  Age: 47 Year
  Sex: Female
  Weight: 70 kg

DRUGS (4)
  1. ADIRO [Interacting]
     Indication: ACUTE CORONARY SYNDROME
     Route: 048
     Dates: start: 20080903, end: 20080921
  2. PLAVIX [Interacting]
     Indication: ACUTE CORONARY SYNDROME
     Route: 048
     Dates: start: 20080903, end: 20080921
  3. EMCONCOR 5 (BISOPROLOL HEMIFUMARATE) [Suspect]
     Indication: HYPERTENSION
     Route: 048
     Dates: start: 20080903, end: 20080921
  4. MICARDIS HCT [Concomitant]
     Indication: HYPERTENSION
     Route: 049
     Dates: start: 20070101, end: 20080921

REACTIONS (1)
  - THROMBOTIC THROMBOCYTOPENIC PURPURA [None]
